FAERS Safety Report 7371351-6 (Version None)
Quarter: 2011Q1

REPORT INFORMATION
  Report Type: 
  Country: None (occurrence: None)
  Receive Date: 20110318
  Receipt Date: 20110318
  Transmission Date: 20110831
  Serious: Yes (Life-Threatening, Hospitalization, Disabling, Other)
  Sender: FDA-Public Use
  Company Number: None

PATIENT
  Age: 40 Year
  Sex: Female
  Weight: 93.8946 kg

DRUGS (1)
  1. IMPLANON [Suspect]
     Indication: CONTRACEPTION
     Dosage: SUBDERMAL
     Route: 059
     Dates: start: 20110115, end: 20110317

REACTIONS (14)
  - SUICIDAL IDEATION [None]
  - HAEMORRHAGE [None]
  - PAIN IN EXTREMITY [None]
  - IMPLANT SITE PAIN [None]
  - MAJOR DEPRESSION [None]
  - MOOD SWINGS [None]
  - ABDOMINAL PAIN [None]
  - LOSS OF CONSCIOUSNESS [None]
  - EYE PAIN [None]
  - OEDEMA PERIPHERAL [None]
  - IMPAIRED WORK ABILITY [None]
  - HYPOAESTHESIA [None]
  - HEADACHE [None]
  - MARITAL PROBLEM [None]
